FAERS Safety Report 5762285-9 (Version None)
Quarter: 2008Q2

REPORT INFORMATION
  Report Type: 
  Country: None (occurrence: None)
  Receive Date: 20080609
  Receipt Date: 20080529
  Transmission Date: 20081010
  Serious: Yes (Death)
  Sender: FDA-Public Use
  Company Number: US-AMGEN-US283158

PATIENT
  Sex: Male

DRUGS (3)
  1. PROCRIT [Suspect]
     Indication: ANAEMIA
     Route: 058
     Dates: start: 20040101, end: 20060101
  2. UNSPECIFIED BETA BLOCKER [Concomitant]
  3. ASPIRIN [Concomitant]

REACTIONS (1)
  - DEATH [None]
